FAERS Safety Report 6147001-3 (Version None)
Quarter: 2009Q2

REPORT INFORMATION
  Report Type: 
  Country: None (occurrence: None)
  Receive Date: 20090403
  Receipt Date: 20090326
  Transmission Date: 20091009
  Serious: Yes (Hospitalization)
  Sender: FDA-Public Use
  Company Number: 2009SP006114

PATIENT
  Age: 44 Year
  Sex: Male
  Weight: 92 kg

DRUGS (5)
  1. PEG-INTRON [Suspect]
     Indication: MALIGNANT MELANOMA
     Dosage: 276 MCG; QW; SC
     Route: 058
     Dates: start: 20090303, end: 20090310
  2. SORAFENIB (SORAFENIB) [Suspect]
     Dosage: 800 MCG; QD; PO
     Route: 048
     Dates: start: 20090303, end: 20090317
  3. EDRONAX /01350601/ [Concomitant]
  4. MIRTAZELON [Concomitant]
  5. BEROTEC [Concomitant]

REACTIONS (7)
  - APTYALISM [None]
  - DEHYDRATION [None]
  - GENERAL PHYSICAL HEALTH DETERIORATION [None]
  - HYPERVENTILATION [None]
  - SALIVARY HYPERSECRETION [None]
  - TACHYCARDIA [None]
  - THROMBOCYTOPENIA [None]
